FAERS Safety Report 5912435-6 (Version None)
Quarter: 2008Q4

REPORT INFORMATION
  Report Type: 
  Country: None (occurrence: None)
  Receive Date: 20081008
  Receipt Date: 20080916
  Transmission Date: 20090506
  Serious: Yes (Other)
  Sender: FDA-Public Use
  Company Number: BE-ELI_LILLY_AND_COMPANY-BE200809003648

PATIENT
  Sex: Female

DRUGS (8)
  1. FORTEO [Suspect]
     Indication: OSTEOPOROSIS
     Dosage: 20 UG, UNKNOWN
     Route: 058
     Dates: start: 20070305
  2. LEDERTREXATE [Concomitant]
     Dosage: 10 MG, WEEKLY (1/W)
     Route: 030
  3. FOLIC ACID [Concomitant]
     Dosage: 1 MG, DAILY (1/D)
     Route: 065
  4. REMICADE [Concomitant]
     Dosage: 200 MG, 8 WEEKS
     Route: 042
  5. STEOVIT D3 [Concomitant]
     Dosage: 400E
     Route: 065
  6. DOCLORMETA [Concomitant]
     Dosage: 2 MG, 1/2 COMP
     Route: 065
  7. DAFALGAN [Concomitant]
     Dosage: 1 G, DAILY (1/D)
     Route: 065
  8. TRADONAL [Concomitant]
     Dosage: 50 MG, 2/D
     Route: 065

REACTIONS (2)
  - FALL [None]
  - FEMUR FRACTURE [None]
